FAERS Safety Report 7029715-6 (Version None)
Quarter: 2010Q4

REPORT INFORMATION
  Report Type: 
  Country: None (occurrence: None)
  Receive Date: 20101005
  Receipt Date: 20101005
  Transmission Date: 20110411
  Serious: Yes (Hospitalization)
  Sender: FDA-Public Use
  Company Number: None

PATIENT
  Sex: Female
  Weight: 39.5 kg

DRUGS (9)
  1. CARBOPLATIN [Suspect]
     Dosage: 425 MG
     Dates: end: 20100901
  2. TAXOTERE [Suspect]
     Dosage: 102 MG
     Dates: end: 20100901
  3. HERCEPTIN [Suspect]
     Dosage: 261 MG
     Dates: end: 20100915
  4. ACTONEL [Concomitant]
  5. IMODIUM [Concomitant]
  6. MAXALT [Concomitant]
  7. NEXIUM [Concomitant]
  8. OXAZEPAM [Concomitant]
  9. TYLENOL-500 [Concomitant]

REACTIONS (1)
  - HYPOKALAEMIA [None]
